FAERS Safety Report 6794027-2 (Version None)
Quarter: 2010Q2

REPORT INFORMATION
  Report Type: 
  Country: None (occurrence: None)
  Receive Date: 20100624
  Receipt Date: 20070524
  Transmission Date: 20101027
  Serious: No
  Sender: FDA-Public Use
  Company Number: JP-PFIZER INC-ENC200700073

PATIENT
  Age: 95 Year
  Sex: Female

DRUGS (1)
  1. ARGATROBAN [Suspect]
     Indication: ARTERIOSCLEROSIS OBLITERANS
     Dosage: FREQUENCY:  QD
     Route: 042
     Dates: start: 20070427, end: 20070501

REACTIONS (1)
  - HAEMATURIA [None]
